FAERS Safety Report 6085563-5 (Version None)
Quarter: 2009Q1

REPORT INFORMATION
  Report Type: 
  Country: None (occurrence: None)
  Receive Date: 20090220
  Receipt Date: 20090210
  Transmission Date: 20090719
  Serious: Yes (Other)
  Sender: FDA-Public Use
  Company Number: DE-PFIZER INC-2009157514

PATIENT

DRUGS (2)
  1. HEPARIN SODIUM [Suspect]
     Indication: THROMBOSIS PROPHYLAXIS
  2. EMBOLEX [Suspect]
     Indication: THROMBOSIS PROPHYLAXIS

REACTIONS (8)
  - ANAPHYLACTIC SHOCK [None]
  - ANGIOEDEMA [None]
  - ANTI-PLATELET ANTIBODY POSITIVE [None]
  - COMPARTMENT SYNDROME [None]
  - DEEP VEIN THROMBOSIS [None]
  - HEADACHE [None]
  - HYPERSENSITIVITY [None]
  - THROMBOCYTHAEMIA [None]
